FAERS Safety Report 14552315 (Version 1)
Quarter: 2018Q1

REPORT INFORMATION
  Report Type: Spontaneous
  Country: US (occurrence: US)
  Receive Date: 20180220
  Receipt Date: 20180220
  Transmission Date: 20180509
  Serious: Yes (Other)
  Sender: FDA-Public Use
  Company Number: US-AUROBINDO-AUR-APL-2018-006045

PATIENT
  Age: 28 Year
  Sex: Male

DRUGS (24)
  1. MOXIFLOXACIN. [Concomitant]
     Active Substance: MOXIFLOXACIN
     Indication: TUBERCULOMA OF CENTRAL NERVOUS SYSTEM
     Dosage: 400 MG, DAILY
     Route: 048
  2. PYRIDOXINE [Concomitant]
     Active Substance: PYRIDOXINE
     Dosage: 100 MG, UNK
  3. DEXAMETHASONE. [Suspect]
     Active Substance: DEXAMETHASONE
     Indication: OEDEMA
     Dosage: LONG-TERM STEROID USE
     Route: 048
  4. DEXAMETHASONE. [Concomitant]
     Active Substance: DEXAMETHASONE
     Dosage: 2 MG, DAILY
     Route: 048
  5. AMOXICILLIN CLAVULANIC ACID [Concomitant]
     Active Substance: AMOXICILLIN\CLAVULANIC ACID
     Indication: TUBERCULOMA OF CENTRAL NERVOUS SYSTEM
     Dosage: ()
     Route: 048
  6. DEXAMETHASONE. [Suspect]
     Active Substance: DEXAMETHASONE
     Dosage: LONG-TERM STEROID USE
     Route: 048
  7. LINEZOLID. [Suspect]
     Active Substance: LINEZOLID
     Indication: TUBERCULOMA OF CENTRAL NERVOUS SYSTEM
     Dosage: 600 MG, DAILY
     Route: 048
  8. CAPREOMYCIN [Concomitant]
     Active Substance: CAPREOMYCIN
     Indication: TUBERCULOMA OF CENTRAL NERVOUS SYSTEM
     Dosage: 1000 MG, DAILY
     Route: 042
  9. MOXIFLOXACIN. [Concomitant]
     Active Substance: MOXIFLOXACIN
     Indication: TUBERCULOSIS OF CENTRAL NERVOUS SYSTEM
     Dosage: 400 MG, DAILY
     Route: 048
  10. PYRAZINAMIDE. [Concomitant]
     Active Substance: PYRAZINAMIDE
     Indication: TUBERCULOSIS OF CENTRAL NERVOUS SYSTEM
     Dosage: 2000 MG, DAILY
     Route: 048
  11. CAPREOMYCIN [Concomitant]
     Active Substance: CAPREOMYCIN
     Indication: TUBERCULOSIS OF CENTRAL NERVOUS SYSTEM
     Dosage: 1000 MG, DAILY
     Route: 042
  12. BEDAQUILINE [Concomitant]
     Active Substance: BEDAQUILINE
     Dosage: LOADING DOSE
     Route: 048
  13. AMOXICILLIN CLAVULANIC ACID [Concomitant]
     Active Substance: AMOXICILLIN\CLAVULANIC ACID
     Indication: TUBERCULOSIS OF CENTRAL NERVOUS SYSTEM
     Dosage: 1 DF, 3 TIMES A DAY
     Route: 048
  14. ISONIAZID. [Concomitant]
     Active Substance: ISONIAZID
     Indication: TUBERCULOMA OF CENTRAL NERVOUS SYSTEM
     Dosage: 600 MG, DAILY
     Route: 048
  15. PYRAZINAMIDE. [Concomitant]
     Active Substance: PYRAZINAMIDE
     Indication: TUBERCULOMA OF CENTRAL NERVOUS SYSTEM
     Dosage: 2000 MG, DAILY
     Route: 048
  16. DEXAMETHASONE. [Suspect]
     Active Substance: DEXAMETHASONE
     Dosage: EVERY OTHER DAY, LONG-TERM STEROID USE
     Route: 048
  17. DEXAMETHASONE. [Concomitant]
     Active Substance: DEXAMETHASONE
     Indication: OEDEMA
     Dosage: 1 MG, DAILY
     Route: 048
  18. DEXAMETHASONE. [Concomitant]
     Active Substance: DEXAMETHASONE
     Dosage: 1 MG, EVERY OTHER DAY
     Route: 048
  19. ISONIAZID. [Concomitant]
     Active Substance: ISONIAZID
     Indication: TUBERCULOSIS OF CENTRAL NERVOUS SYSTEM
     Dosage: 600 MG, DAILY
     Route: 048
  20. LINEZOLID. [Concomitant]
     Active Substance: LINEZOLID
     Indication: TUBERCULOMA OF CENTRAL NERVOUS SYSTEM
     Dosage: 600 MG, DAILY
     Route: 048
  21. DEXAMETHASONE. [Suspect]
     Active Substance: DEXAMETHASONE
     Dosage: LONG-TERM STEROID USE
     Route: 048
  22. PYRIDOXINE [Concomitant]
     Active Substance: PYRIDOXINE
     Indication: TUBERCULOMA OF CENTRAL NERVOUS SYSTEM
     Dosage: 100 MG, UNK
  23. BEDAQUILINE [Concomitant]
     Active Substance: BEDAQUILINE
     Indication: TUBERCULOSIS OF CENTRAL NERVOUS SYSTEM
     Dosage: 200 MG, UNK
     Route: 048
  24. MEROPENEM. [Concomitant]
     Active Substance: MEROPENEM
     Indication: TUBERCULOMA OF CENTRAL NERVOUS SYSTEM
     Dosage: 2 G, 3 TIMES A DAY
     Route: 042

REACTIONS (6)
  - Toxicity to various agents [Unknown]
  - Osteonecrosis [Unknown]
  - Weight increased [Unknown]
  - Fatigue [Unknown]
  - General physical health deterioration [Unknown]
  - Neuropathy peripheral [Recovering/Resolving]
